FAERS Safety Report 6319769-4 (Version None)
Quarter: 2009Q3

REPORT INFORMATION
  Report Type: 
  Country: None (occurrence: None)
  Receive Date: 20090822
  Receipt Date: 20080930
  Transmission Date: 20100115
  Serious: No
  Sender: FDA-Public Use
  Company Number: US-ABBOTT-08P-163-0478561-00

PATIENT
  Age: 39 Year
  Sex: Female

DRUGS (6)
  1. NIASPAN [Suspect]
     Indication: BLOOD CHOLESTEROL INCREASED
     Route: 048
     Dates: start: 20080501, end: 20080901
  2. NIASPAN [Suspect]
     Dates: start: 20080901, end: 20080908
  3. NIASPAN [Suspect]
     Dates: start: 20080908, end: 20080915
  4. NIASPAN [Suspect]
     Dates: start: 20080915
  5. NIASPAN [Suspect]
  6. MULTI-VITAMIN [Concomitant]
     Indication: DRUG USE FOR UNKNOWN INDICATION

REACTIONS (8)
  - ACNE [None]
  - DRY SKIN [None]
  - FEELING HOT [None]
  - HYPOAESTHESIA [None]
  - JOINT STIFFNESS [None]
  - MALAISE [None]
  - RASH [None]
  - WEIGHT DECREASED [None]
